FAERS Safety Report 11594351 (Version 1)
Quarter: 2015Q4

REPORT INFORMATION
  Report Type: Spontaneous
  Country: FR (occurrence: FR)
  Receive Date: 20151005
  Receipt Date: 20151005
  Transmission Date: 20160304
  Serious: Yes (Other)
  Sender: FDA-Public Use
  Company Number: FR-GLAXOSMITHKLINE-FR2015GSK141014

PATIENT
  Age: 43 Year
  Sex: Female

DRUGS (5)
  1. FLUOROURACIL. [Suspect]
     Active Substance: FLUOROURACIL
     Indication: NEUROENDOCRINE CARCINOMA METASTATIC
     Dosage: 650 MG, Z (1 IN 1 CYCLE)-2 ADMINISTRATIONS
     Route: 042
     Dates: start: 20150810, end: 20150811
  2. ZOPHREN [Suspect]
     Active Substance: ONDANSETRON
     Indication: PREMEDICATION
     Dosage: 1 DF, QD (3 ADMINISTRATIONS)
     Dates: start: 20150810, end: 20150812
  3. METHYLPREDNISOLONE. [Concomitant]
     Active Substance: METHYLPREDNISOLONE
     Indication: PREMEDICATION
  4. ZANOSAR [Suspect]
     Active Substance: STREPTOZOCIN
     Indication: NEUROENDOCRINE CARCINOMA METASTATIC
     Dosage: 1 DF, QD
     Route: 042
     Dates: start: 20150810, end: 20150813
  5. EMEND [Suspect]
     Active Substance: APREPITANT
     Indication: PRODUCT USED FOR UNKNOWN INDICATION
     Dosage: 80 MG, QD
     Route: 048
     Dates: start: 20150810, end: 20150813

REACTIONS (1)
  - Abdominal pain upper [Recovered/Resolved]

NARRATIVE: CASE EVENT DATE: 20150810
